FAERS Safety Report 20163005 (Version 1)
Quarter: 2021Q4

REPORT INFORMATION
  Report Type: Spontaneous
  Country: US (occurrence: US)
  Receive Date: 20211209
  Receipt Date: 20211209
  Transmission Date: 20220303
  Serious: No
  Sender: FDA-Public Use
  Company Number: US-BAUSCH-BL-2021-039874

PATIENT
  Sex: Female

DRUGS (2)
  1. TROPICAMIDE [Suspect]
     Active Substance: TROPICAMIDE
     Indication: Product used for unknown indication
     Route: 047
  2. PROPARACAINE HYDROCHLORIDE [Suspect]
     Active Substance: PROPARACAINE HYDROCHLORIDE
     Indication: Product used for unknown indication
     Route: 047

REACTIONS (3)
  - Instillation site pain [Recovered/Resolved]
  - Reaction to preservatives [Unknown]
  - Instillation site pain [Recovered/Resolved]
